FAERS Safety Report 4383443-4 (Version None)
Quarter: 2004Q2

REPORT INFORMATION
  Report Type: 
  Country: None (occurrence: None)
  Receive Date: 20040622
  Receipt Date: 20040622
  Transmission Date: 20050107
  Serious: Yes (Hospitalization)
  Sender: FDA-Public Use
  Company Number: None

PATIENT
  Age: 50 Year
  Sex: Female

DRUGS (3)
  1. HUMIRA [Suspect]
     Indication: RHEUMATOID ARTHRITIS
     Dosage: 40 MG SQ Q 2 WKS
     Route: 058
     Dates: start: 20040402, end: 20040531
  2. LEFLUNOMIDE [Concomitant]
  3. PREMARIN [Concomitant]

REACTIONS (8)
  - CHILLS [None]
  - INJECTION SITE BURNING [None]
  - INJECTION SITE ERYTHEMA [None]
  - INJECTION SITE PAIN [None]
  - PAIN [None]
  - PRURITUS [None]
  - RASH [None]
  - RASH VESICULAR [None]
